FAERS Safety Report 12319222 (Version 1)
Quarter: 2016Q2

REPORT INFORMATION
  Report Type: Spontaneous
  Country: US (occurrence: US)
  Receive Date: 20160429
  Receipt Date: 20160429
  Transmission Date: 20160815
  Serious: No
  Sender: FDA-Public Use
  Company Number: US-ROCHE-1606566

PATIENT
  Sex: Male
  Weight: 99.88 kg

DRUGS (2)
  1. ESBRIET [Suspect]
     Active Substance: PIRFENIDONE
     Indication: IDIOPATHIC PULMONARY FIBROSIS
     Dosage: 534 MG TID/ TOTAL OF 1602 MG DAILY
     Route: 048
     Dates: start: 20150520
  2. ESBRIET [Suspect]
     Active Substance: PIRFENIDONE
     Dosage: 3 CAPS PO
     Route: 048

REACTIONS (11)
  - Vomiting [Unknown]
  - Cough [Unknown]
  - Rash [Unknown]
  - Nasopharyngitis [Unknown]
  - Faeces discoloured [Unknown]
  - Weight decreased [Unknown]
  - Decreased appetite [Unknown]
  - Asthenia [Unknown]
  - Pneumonia [Unknown]
  - Dysgeusia [Unknown]
  - Dizziness [Unknown]
